FAERS Safety Report 8531533-4 (Version None)
Quarter: 2012Q3

REPORT INFORMATION
  Report Type: 
  Country: None (occurrence: None)
  Receive Date: 20120723
  Receipt Date: 20120712
  Transmission Date: 20120928
  Serious: Yes (Other)
  Sender: FDA-Public Use
  Company Number: JP-VERTEX PHARMACEUTICALS INC.-AE-2012-010461

PATIENT
  Age: 62 Year
  Sex: Male

DRUGS (6)
  1. RIBAVIRIN [Concomitant]
     Indication: HEPATITIS C
     Route: 048
     Dates: start: 20120412, end: 20120501
  2. RIBAVIRIN [Concomitant]
     Route: 048
     Dates: start: 20120621
  3. RIBAVIRIN [Concomitant]
     Route: 048
     Dates: start: 20120502, end: 20120620
  4. TELAVIC (TELAPREVIR) [Suspect]
     Indication: HEPATITIS C
     Route: 048
     Dates: start: 20120412
  5. PEGINTERFERON ALFA-2B [Concomitant]
     Route: 058
     Dates: start: 20120412
  6. GASMOTIN [Concomitant]
     Route: 048
     Dates: start: 20120412

REACTIONS (1)
  - RASH [None]
